FAERS Safety Report 17086162 (Version 1)
Quarter: 2019Q4

REPORT INFORMATION
  Report Type: Spontaneous
  Country: US (occurrence: US)
  Receive Date: 20191127
  Receipt Date: 20191127
  Transmission Date: 20200122
  Serious: Yes (Hospitalization)
  Sender: FDA-Public Use
  Company Number: None

PATIENT
  Age: 79 Year
  Sex: Female
  Weight: 51.3 kg

DRUGS (1)
  1. APIXABAN [Suspect]
     Active Substance: APIXABAN
     Route: 048

REACTIONS (6)
  - Gastrointestinal haemorrhage [None]
  - Duodenal ulcer [None]
  - Haemoglobin decreased [None]
  - Haematocrit decreased [None]
  - Hypotension [None]
  - Melaena [None]

NARRATIVE: CASE EVENT DATE: 20190911
